FAERS Safety Report 5179039-7 (Version None)
Quarter: 2006Q4

REPORT INFORMATION
  Report Type: 
  Country: None (occurrence: None)
  Receive Date: 20061219
  Receipt Date: 20061211
  Transmission Date: 20070319
  Serious: Yes (Other)
  Sender: FDA-Public Use
  Company Number: CN-BRISTOL-MYERS SQUIBB COMPANY-13610555

PATIENT
  Age: 65 Year
  Sex: Female

DRUGS (2)
  1. MONOPRIL [Suspect]
     Indication: HYPERTENSION
     Route: 048
     Dates: start: 20050601, end: 20061201
  2. NIFEDIPINE [Concomitant]
     Indication: HYPERTENSION

REACTIONS (1)
  - MUCOSAL MEMBRANE HYPERPLASIA [None]
